FAERS Safety Report 6309722-9 (Version None)
Quarter: 2009Q3

REPORT INFORMATION
  Report Type: 
  Country: None (occurrence: None)
  Receive Date: 20090814
  Receipt Date: 20090811
  Transmission Date: 20100115
  Serious: Yes (Hospitalization)
  Sender: FDA-Public Use
  Company Number: PHHO2008FR14954

PATIENT
  Sex: Female

DRUGS (2)
  1. ERL 080A ERL+TAB [Suspect]
     Indication: RENAL TRANSPLANT
     Dosage: 1080 MG, BID
     Route: 048
     Dates: start: 20080423, end: 20080425
  2. ERL 080A ERL+TAB [Suspect]
     Dosage: NO TREATMENT
     Dates: start: 20080425

REACTIONS (3)
  - ABSCESS DRAINAGE [None]
  - RECTAL LESION [None]
  - SUBCUTANEOUS ABSCESS [None]
